FAERS Safety Report 6944573-3 (Version None)
Quarter: 2010Q3

REPORT INFORMATION
  Report Type: 
  Country: None (occurrence: None)
  Receive Date: 20100827
  Receipt Date: 20100424
  Transmission Date: 20110219
  Serious: No
  Sender: FDA-Public Use
  Company Number: US-PFIZER INC-2010052645

PATIENT
  Sex: Male

DRUGS (2)
  1. LYRICA [Suspect]
     Dosage: 300 MG, 1X/DAY
  2. GABAPENTIN [Suspect]
     Dosage: 900 MG, 1X/DAY

REACTIONS (1)
  - DIZZINESS [None]
